FAERS Safety Report 14047872 (Version 4)
Quarter: 2018Q2

REPORT INFORMATION
  Report Type: Report from Study
  Country: US (occurrence: US)
  Receive Date: 20171005
  Receipt Date: 20180604
  Transmission Date: 20180711
  Serious: Yes (Hospitalization, Other)
  Sender: FDA-Public Use
  Company Number: US-ACTELION-A-US2017-160165

PATIENT
  Age: 72 Year
  Sex: Female
  Weight: 74.83 kg

DRUGS (4)
  1. LASIX [Concomitant]
     Active Substance: FUROSEMIDE
  2. AMLODIPINE [Concomitant]
     Active Substance: AMLODIPINE BESYLATE
  3. OPSUMIT [Suspect]
     Active Substance: MACITENTAN
     Indication: PULMONARY ARTERIAL HYPERTENSION
     Dosage: 10 MG, QD
     Route: 048
  4. ADEMPAS [Concomitant]
     Active Substance: RIOCIGUAT

REACTIONS (7)
  - Dyspnoea [Unknown]
  - Clostridium difficile infection [Recovered/Resolved]
  - Aortic disorder [Unknown]
  - Dialysis [Unknown]
  - Cardiac failure congestive [Unknown]
  - Diarrhoea [Recovered/Resolved]
  - Dyspnoea exertional [Unknown]
